FAERS Safety Report 10238673 (Version 1)
Quarter: 2014Q2

REPORT INFORMATION
  Report Type: Spontaneous
  Country: US (occurrence: US)
  Receive Date: 20140616
  Receipt Date: 20140616
  Transmission Date: 20141212
  Serious: No
  Sender: FDA-Public Use
  Company Number: US-ENDO PHARMACEUTICALS INC.-OPCR20140091

PATIENT
  Sex: Female

DRUGS (5)
  1. OPANA ER 5MG [Suspect]
     Indication: PAIN
     Route: 048
     Dates: start: 20140228
  2. OPANA [Suspect]
     Indication: PAIN
     Route: 048
  3. OPANA [Suspect]
     Route: 048
  4. OPANA [Suspect]
     Route: 048
  5. OXYMORPHONE [Concomitant]
     Indication: PAIN
     Dosage: UNKNOWN
     Route: 048
     Dates: end: 20140227

REACTIONS (4)
  - Intentional product misuse [Not Recovered/Not Resolved]
  - Wrong technique in drug usage process [Not Recovered/Not Resolved]
  - Withdrawal syndrome [Not Recovered/Not Resolved]
  - Drug effect incomplete [Not Recovered/Not Resolved]
